FAERS Safety Report 10278590 (Version 4)
Quarter: 2014Q3

REPORT INFORMATION
  Report Type: Report from Study
  Country: CA (occurrence: CA)
  Receive Date: 20140704
  Receipt Date: 20140825
  Transmission Date: 20150326
  Serious: Yes (Hospitalization)
  Sender: FDA-Public Use
  Company Number: CA-009507513-1406CAN013715

PATIENT
  Age: 59 Year
  Sex: Female
  Weight: 61.5 kg

DRUGS (10)
  1. SENOKOT [Suspect]
     Active Substance: SENNOSIDES
     Indication: CONSTIPATION
     Dosage: 1 DOSAGE FORMS, AS REQUIRED
     Route: 048
     Dates: start: 20140317
  2. FOLIC ACID. [Suspect]
     Active Substance: FOLIC ACID
     Indication: SINGLE PHOTON EMISSION COMPUTERISED TOMOGRAM
     Dosage: 0.5 MG, ONCE
     Route: 042
     Dates: start: 20140225, end: 20140225
  3. GAVISCON (ALGINIC ACID (+) ALUMINUM HYDROXIDE (+) MAGNESIUM TRISILICAT [Suspect]
     Active Substance: ALGINIC ACID\ALUMINUM HYDROXIDE\MAGNESIUM TRISILICATE
     Indication: DYSPEPSIA
     Dosage: 1 TABLESPOON, AS REQUIRED
     Route: 048
     Dates: start: 20140314
  4. EC20-TECHNETIUM99M-ETARFOLATIDE [Suspect]
     Active Substance: TECHNETIUM TC-99M ETARFOLATIDE
     Indication: SINGLE PHOTON EMISSION COMPUTERISED TOMOGRAM
     Dosage: 1.3 ML, ONCE
     Route: 042
     Dates: start: 20140225, end: 20140225
  5. GRANISETRON [Suspect]
     Active Substance: GRANISETRON
     Indication: NAUSEA
     Dosage: 2 MG, QD
     Route: 048
     Dates: start: 20140317, end: 20140319
  6. PACLITAXEL. [Suspect]
     Active Substance: PACLITAXEL
     Indication: OVARIAN CANCER
     Dosage: DAILY DOSE: 2.5 MG (2.5 MG, DAY1,3,5,15,17 AND 19)
     Route: 042
     Dates: start: 20140317, end: 20140609
  7. TYLENOL [Suspect]
     Active Substance: ACETAMINOPHEN
     Indication: MUSCULOSKELETAL CHEST PAIN
     Dosage: 1-2 TABLETS, AS REQUIRED
     Route: 048
     Dates: start: 20140427
  8. PEGYLATED LIPOSOMAL DOXORUBICIN [Suspect]
     Active Substance: DOXORUBICIN
     Indication: OVARIAN CANCER
     Dosage: DAILY DOSE: 50 MG/M2 (50 MG/M2, 1 IN 28 DAYS)
     Route: 042
     Dates: start: 20140317, end: 20140609
  9. DEXAMETHASONE. [Suspect]
     Active Substance: DEXAMETHASONE
     Indication: NAUSEA
     Dosage: 4 MG, BID, POST CHEMOTHERAPY
     Route: 048
     Dates: start: 20140317
  10. DEXAMETHASONE. [Suspect]
     Active Substance: DEXAMETHASONE
     Dosage: 20 MG, ONCE, PRE-CHEMOTHERAPY
     Route: 048
     Dates: start: 20140317, end: 20140317

REACTIONS (1)
  - Pain in extremity [Not Recovered/Not Resolved]

NARRATIVE: CASE EVENT DATE: 20140619
